FAERS Safety Report 21788946 (Version 1)
Quarter: 2022Q4

REPORT INFORMATION
  Report Type: Spontaneous
  Country: None (occurrence: US)
  Receive Date: 20221228
  Receipt Date: 20221228
  Transmission Date: 20230113
  Serious: No
  Sender: FDA-Public Use
  Company Number: US-Mission Pharmacal Company-2136235

PATIENT
  Age: 61 Year
  Sex: Male

DRUGS (2)
  1. THIOLA EC [Suspect]
     Active Substance: TIOPRONIN
     Indication: Cystinuria
     Route: 048
     Dates: start: 20190901
  2. POTASSIUM CITRATE [Concomitant]
     Active Substance: POTASSIUM CITRATE
     Route: 048

REACTIONS (2)
  - Dysuria [Not Recovered/Not Resolved]
  - Prostatomegaly [Unknown]
